FAERS Safety Report 8509416-5 (Version None)
Quarter: 2012Q3

REPORT INFORMATION
  Report Type: 
  Country: None (occurrence: None)
  Receive Date: 20120713
  Receipt Date: 20120703
  Transmission Date: 20120928
  Serious: Yes (Other)
  Sender: FDA-Public Use
  Company Number: FR-PFIZER INC-2012159083

PATIENT
  Age: 60 Year
  Sex: Female

DRUGS (3)
  1. MYLOTARG [Suspect]
     Indication: ACUTE LEUKAEMIA
     Dosage: 10.98 MG, 1X/DAY
     Route: 042
     Dates: start: 20100429, end: 20100429
  2. CYTARABINE [Suspect]
     Indication: ACUTE LEUKAEMIA
     Dosage: 1830 MG, 2X/DAY
     Route: 042
     Dates: start: 20100426, end: 20100501
  3. MITOXANTRONE [Suspect]
     Indication: ACUTE LEUKAEMIA
     Dosage: 21.96 MG, 1X/DAY
     Route: 042
     Dates: start: 20100426, end: 20100427

REACTIONS (1)
  - CYTOLYTIC HEPATITIS [None]
